FAERS Safety Report 14827702 (Version 1)
Quarter: 2018Q2

REPORT INFORMATION
  Report Type: Spontaneous
  Country: US (occurrence: US)
  Receive Date: 20180430
  Receipt Date: 20180430
  Transmission Date: 20180711
  Serious: No
  Sender: FDA-Public Use
  Company Number: US-009507513-1804USA007160

PATIENT
  Age: 24 Year
  Sex: Female

DRUGS (1)
  1. NEXPLANON [Suspect]
     Active Substance: ETONOGESTREL
     Indication: CONTRACEPTION
     Dosage: 1 IMPLANT, THREE YEARS
     Route: 059
     Dates: start: 20170917

REACTIONS (3)
  - Implant site hypoaesthesia [Not Recovered/Not Resolved]
  - Keloid scar [Not Recovered/Not Resolved]
  - Device deployment issue [Not Recovered/Not Resolved]
